FAERS Safety Report 17239885 (Version 2)
Quarter: 2020Q1

REPORT INFORMATION
  Report Type: Spontaneous
  Country: DE (occurrence: DE)
  Receive Date: 20200106
  Receipt Date: 20200225
  Transmission Date: 20200409
  Serious: Yes (Hospitalization, Other)
  Sender: FDA-Public Use
  Company Number: DE-AUROBINDO-AUR-APL-2020-000536

PATIENT

DRUGS (5)
  1. CANNABIS [Suspect]
     Active Substance: CANNABIS SATIVA SUBSP. INDICA TOP
     Indication: PRODUCT USED FOR UNKNOWN INDICATION
     Dosage: UNK
     Route: 065
  2. OLANZAPINE TABLET [Suspect]
     Active Substance: OLANZAPINE
     Indication: PSYCHOTIC DISORDER
     Dosage: 20 MILLIGRAM, ONCE A DAY (2 TABLETS PER DAY)
     Route: 048
     Dates: start: 20191120, end: 201912
  3. DIAZEPAM. [Concomitant]
     Active Substance: DIAZEPAM
     Indication: PRODUCT USED FOR UNKNOWN INDICATION
     Dosage: UNK
     Route: 065
  4. OLANZAPINE TABLET [Suspect]
     Active Substance: OLANZAPINE
     Dosage: 10 MILLIGRAM, ONCE A DAY
     Route: 048
     Dates: start: 201912
  5. LORAZEPAM. [Suspect]
     Active Substance: LORAZEPAM
     Indication: PSYCHOTIC DISORDER
     Dosage: UNK
     Route: 016
     Dates: start: 20191120

REACTIONS (20)
  - Tremor [Recovered/Resolved]
  - Headache [Recovered/Resolved]
  - Weight decreased [Recovered/Resolved]
  - Fatigue [Not Recovered/Not Resolved]
  - Dizziness [Not Recovered/Not Resolved]
  - Fear [Recovered/Resolved]
  - Dyspnoea [Recovered/Resolved]
  - Increased appetite [Not Recovered/Not Resolved]
  - Constipation [Recovered/Resolved]
  - Amenorrhoea [Recovered/Resolved]
  - Aggression [Recovered/Resolved]
  - Haematoma [Not Recovered/Not Resolved]
  - Hallucination [Not Recovered/Not Resolved]
  - Substance-induced psychotic disorder [Not Recovered/Not Resolved]
  - Feeling abnormal [Recovered/Resolved]
  - Hyperhidrosis [Recovered/Resolved]
  - Peripheral swelling [Not Recovered/Not Resolved]
  - Disturbance in attention [Not Recovered/Not Resolved]
  - Feeling hot [Recovered/Resolved]
  - Peripheral venous disease [Not Recovered/Not Resolved]

NARRATIVE: CASE EVENT DATE: 2019
